FAERS Safety Report 6171168-4 (Version None)
Quarter: 2009Q2

REPORT INFORMATION
  Report Type: 
  Country: None (occurrence: None)
  Receive Date: 20090429
  Receipt Date: 20090421
  Transmission Date: 20091009
  Serious: No
  Sender: FDA-Public Use
  Company Number: US-ELI_LILLY_AND_COMPANY-US200904005449

PATIENT
  Age: 38 Year
  Sex: Female

DRUGS (5)
  1. CYMBALTA [Suspect]
     Dosage: 60 MG, UNK
     Dates: start: 20081203
  2. DESVENLAFAXINE [Concomitant]
  3. ABILIFY [Concomitant]
     Indication: MAJOR DEPRESSION
  4. CLONOPIN [Concomitant]
     Indication: ANXIETY
  5. ETHANOL [Concomitant]

REACTIONS (1)
  - HEPATIC ENZYME INCREASED [None]
